FAERS Safety Report 5306433-3 (Version None)
Quarter: 2007Q2

REPORT INFORMATION
  Report Type: 
  Country: None (occurrence: None)
  Receive Date: 20070424
  Receipt Date: 20070419
  Transmission Date: 20071010
  Serious: Yes (Hospitalization)
  Sender: FDA-Public Use
  Company Number: AU-MERCK-0609AUS00147

PATIENT
  Age: 56 Year
  Sex: Female

DRUGS (5)
  1. FOSAMAX PLUS D [Suspect]
     Indication: OSTEOPOROSIS
     Route: 048
     Dates: start: 20060908, end: 20060901
  2. ALENDRONATE SODIUM [Concomitant]
     Indication: OSTEOPOROSIS
     Route: 065
     Dates: start: 20030101, end: 20060908
  3. PERINDOPRIL ERBUMINE [Concomitant]
     Route: 065
  4. VERAPAMIL HYDROCHLORIDE [Concomitant]
     Route: 065
  5. SIMVASTATIN [Concomitant]
     Route: 065

REACTIONS (4)
  - ANXIETY [None]
  - DYSPNOEA [None]
  - FEELING HOT [None]
  - MALAISE [None]
